FAERS Safety Report 22238690 (Version 1)
Quarter: 2023Q2

REPORT INFORMATION
  Report Type: Report from Study
  Country: DE (occurrence: None)
  Receive Date: 20230421
  Receipt Date: 20230421
  Transmission Date: 20230721
  Serious: Yes (Life-Threatening, Hospitalization)
  Sender: FDA-Public Use
  Company Number: 2023A066811

PATIENT
  Age: 71 Year
  Sex: Male
  Weight: 68 kg

DRUGS (2)
  1. OLAPARIB [Suspect]
     Active Substance: OLAPARIB
     Indication: Neoplasm
     Dosage: 300 MG
     Route: 048
     Dates: start: 20230302, end: 20230317
  2. TRABECTEDIN [Suspect]
     Active Substance: TRABECTEDIN
     Indication: Neoplasm
     Dosage: 1.1 MG/M2
     Route: 042
     Dates: start: 20230302, end: 20230302

REACTIONS (1)
  - Febrile neutropenia [Recovered/Resolved]

NARRATIVE: CASE EVENT DATE: 20230319
